FAERS Safety Report 19482867 (Version 2)
Quarter: 2021Q3

REPORT INFORMATION
  Report Type: Spontaneous
  Country: BR (occurrence: BR)
  Receive Date: 20210701
  Receipt Date: 20210712
  Transmission Date: 20211014
  Serious: Yes (Other)
  Sender: FDA-Public Use
  Company Number: BR-EMD SERONO-9243933

PATIENT
  Age: 43 Year
  Sex: Female

DRUGS (22)
  1. CHROMIUM PICOLINATE [Concomitant]
     Active Substance: CHROMIUM PICOLINATE
     Indication: SUPPLEMENTATION THERAPY
  2. MANGANESE GLYCINATE [Concomitant]
     Indication: SUPPLEMENTATION THERAPY
  3. SAXENDA [Concomitant]
     Active Substance: LIRAGLUTIDE
     Indication: PRODUCT USED FOR UNKNOWN INDICATION
     Dates: start: 202012
  4. GLIFAGE [Suspect]
     Active Substance: METFORMIN HYDROCHLORIDE
     Route: 048
     Dates: start: 202106, end: 202106
  5. ZOLPIDEM [Concomitant]
     Active Substance: ZOLPIDEM TARTRATE
     Indication: SLEEP DISORDER
  6. GLIFAGE [Suspect]
     Active Substance: METFORMIN HYDROCHLORIDE
     Route: 048
     Dates: start: 20210501, end: 202106
  7. CLONAZEPAM. [Concomitant]
     Active Substance: CLONAZEPAM
     Indication: SLEEP DISORDER
  8. TRYPTOPHAN                         /00215101/ [Concomitant]
     Active Substance: TRYPTOPHAN
     Indication: SLEEP DISORDER
  9. AMINOCAPROIC ACID. [Concomitant]
     Active Substance: AMINOCAPROIC ACID
     Indication: PRODUCT USED FOR UNKNOWN INDICATION
  10. PROANTHOCYANIDIN [Concomitant]
     Indication: SUPPLEMENTATION THERAPY
  11. N?ACETYLCYSTEINE [Concomitant]
     Active Substance: ACETYLCYSTEINE
     Indication: SUPPLEMENTATION THERAPY
  12. GLIFAGE [Suspect]
     Active Substance: METFORMIN HYDROCHLORIDE
     Route: 048
     Dates: start: 202106, end: 202107
  13. GLYCINE. [Concomitant]
     Active Substance: GLYCINE
     Indication: PRODUCT USED FOR UNKNOWN INDICATION
  14. AMITRIPTYLINE [Concomitant]
     Active Substance: AMITRIPTYLINE
     Indication: SLEEP DISORDER
  15. GLIFAGE [Suspect]
     Active Substance: METFORMIN HYDROCHLORIDE
     Indication: INSULIN RESISTANCE
     Route: 048
     Dates: start: 202012, end: 202101
  16. CARNOSINE [Concomitant]
     Active Substance: CARNOSINE
     Indication: SUPPLEMENTATION THERAPY
  17. ZINC CHELATE [Concomitant]
     Active Substance: ZINC
     Indication: SUPPLEMENTATION THERAPY
  18. PROLINE [Concomitant]
     Active Substance: PROLINE
     Indication: SUPPLEMENTATION THERAPY
  19. BIOTINE                            /00772301/ [Concomitant]
     Active Substance: BIOTIN
     Indication: SUPPLEMENTATION THERAPY
  20. FINASTERIDE. [Concomitant]
     Active Substance: FINASTERIDE
     Indication: SUPPLEMENTATION THERAPY
     Dosage: 1,5 MG
  21. GLIFAGE [Suspect]
     Active Substance: METFORMIN HYDROCHLORIDE
     Route: 048
     Dates: start: 202106, end: 202106
  22. PYRROLOQUINOLINE QUINONE [Concomitant]
     Indication: SUPPLEMENTATION THERAPY

REACTIONS (22)
  - Electrocardiogram abnormal [Unknown]
  - Hunger [Recovering/Resolving]
  - Headache [Unknown]
  - Tinnitus [Not Recovered/Not Resolved]
  - Acne [Recovering/Resolving]
  - Autoimmune thyroiditis [Unknown]
  - Palpitations [Not Recovered/Not Resolved]
  - Hyperhidrosis [Not Recovered/Not Resolved]
  - Urine output decreased [Unknown]
  - Decreased appetite [Recovering/Resolving]
  - Hypertension [Not Recovered/Not Resolved]
  - Irritability [Recovering/Resolving]
  - Deafness unilateral [Not Recovered/Not Resolved]
  - Migraine [Recovering/Resolving]
  - Confusional state [Recovering/Resolving]
  - Feeling hot [Not Recovered/Not Resolved]
  - Treatment noncompliance [Unknown]
  - Dizziness [Unknown]
  - Nausea [Recovering/Resolving]
  - Angina pectoris [Not Recovered/Not Resolved]
  - Diarrhoea [Recovering/Resolving]
  - Off label use [Unknown]

NARRATIVE: CASE EVENT DATE: 2021
